FAERS Safety Report 6388597-6 (Version None)
Quarter: 2009Q4

REPORT INFORMATION
  Report Type: 
  Country: None (occurrence: None)
  Receive Date: 20091005
  Receipt Date: 20090923
  Transmission Date: 20100525
  Serious: Yes (Hospitalization)
  Sender: FDA-Public Use
  Company Number: US-ELI_LILLY_AND_COMPANY-US200909005357

PATIENT
  Weight: 52.154 kg

DRUGS (24)
  1. PEMETREXED [Suspect]
     Indication: NON-SMALL CELL LUNG CANCER METASTATIC
     Dosage: 755 MG, OTHER
     Route: 042
     Dates: start: 20090602
  2. PEMETREXED [Suspect]
     Dosage: 559 MG, OTHER
     Route: 042
     Dates: start: 20090820
  3. GEMCITABINE HCL [Suspect]
     Indication: NON-SMALL CELL LUNG CANCER METASTATIC
     Dosage: 2265 MG, OTHER
     Route: 042
     Dates: start: 20090602
  4. GEMCITABINE HCL [Suspect]
     Dosage: 1676 MG, OTHER
     Route: 042
     Dates: start: 20090820
  5. BEVACIZUMAB [Suspect]
     Indication: NON-SMALL CELL LUNG CANCER METASTATIC
     Dosage: 520 MG, OTHER
     Route: 042
     Dates: start: 20090602
  6. ASPIRIN [Concomitant]
     Dosage: 81 MG, DAILY (1/D)
     Route: 048
  7. DURAGESIC-100 [Concomitant]
     Indication: PAIN
  8. XANAX [Concomitant]
  9. ZOFRAN [Concomitant]
  10. VENTOLIN                                /SCH/ [Concomitant]
  11. COMBIVENT [Concomitant]
  12. SYMBICORT [Concomitant]
  13. ISOPTIN [Concomitant]
  14. PRILOSEC [Concomitant]
  15. ATROVENT [Concomitant]
  16. DECADRON [Concomitant]
     Indication: PREMEDICATION
  17. TRENTAL [Concomitant]
  18. GLUCOPHAGE [Concomitant]
  19. CAPOTEN [Concomitant]
  20. MEVACOR [Concomitant]
  21. M.V.I. [Concomitant]
  22. MULTIVITAMIN [Concomitant]
  23. GELCLAIR [Concomitant]
  24. ALDACTONE [Concomitant]

REACTIONS (2)
  - DEHYDRATION [None]
  - HAEMOGLOBIN DECREASED [None]
